FAERS Safety Report 8396455-0 (Version None)
Quarter: 2012Q1

REPORT INFORMATION
  Report Type: 
  Country: None (occurrence: None)
  Receive Date: 20120323
  Receipt Date: 20110331
  Transmission Date: 20120608
  Serious: Yes (Hospitalization, Other)
  Sender: FDA-Public Use
  Company Number: 163-21880-11033642

PATIENT
  Age: 83 Year
  Sex: Female

DRUGS (14)
  1. OXYCODONE (OXYCODONE) (UNKNOWN) [Concomitant]
  2. PROCHLORPER AMIDE (PROCHLORPERAZINE) (UNKNOWN) [Concomitant]
  3. TOPAMAX [Concomitant]
  4. AMITRIPTYLIN (AMITRIPTYLINE HYDROCHLORIDE) (UNKNOWN) [Concomitant]
  5. GLIMEPIRIDE [Concomitant]
  6. PRAVACHOL [Concomitant]
  7. CALCIUM (CALCIUM) (UNKNOWN) [Concomitant]
  8. ASPIRIN [Concomitant]
  9. AMITRIPTYLIN (AMITRIPTYLINE HYDROCHLORIDE) (UNKNOWN) [Concomitant]
  10. FOSAMAX (ALENDRONATE SODIUM) (UNKNOWN) [Concomitant]
  11. VITAMIN B12 (CYANOCOBALAMIN) (UNKNOWN) [Concomitant]
  12. REVLIMID [Suspect]
     Indication: MYELODYSPLASTIC SYNDROME
     Dosage: 5 MG, 1 IN 1 D, PO
     Route: 048
     Dates: start: 20110201
  13. LISINOPRIL [Concomitant]
  14. PRILOSEC (OMEPRAZOLE) (UNKNOWN) [Concomitant]

REACTIONS (1)
  - ABDOMINAL PAIN UPPER [None]
